FAERS Safety Report 21404178 (Version 1)
Quarter: 2022Q4

REPORT INFORMATION
  Report Type: Spontaneous
  Country: US (occurrence: None)
  Receive Date: 20221003
  Receipt Date: 20221003
  Transmission Date: 20230113
  Serious: Yes (unspecified)
  Sender: FDA-Public Use
  Company Number: None

PATIENT
  Age: 67 Year
  Sex: Female

DRUGS (1)
  1. PIQRAY [Suspect]
     Active Substance: ALPELISIB
     Indication: Breast cancer female
     Dosage: 200 MG DAILY ORAL
     Route: 048
     Dates: start: 20220815, end: 20220929

REACTIONS (5)
  - Nausea [None]
  - Vomiting [None]
  - Skin exfoliation [None]
  - Influenza [None]
  - Dehydration [None]

NARRATIVE: CASE EVENT DATE: 20220929
